FAERS Safety Report 9726986 (Version 1)
Quarter: 2013Q4

REPORT INFORMATION
  Report Type: Spontaneous
  Country: US (occurrence: US)
  Receive Date: 20131203
  Receipt Date: 20131203
  Transmission Date: 20140711
  Serious: No
  Sender: FDA-Public Use
  Company Number: US-NOVEN-13US006831

PATIENT
  Age: 50 Year
  Sex: Male

DRUGS (1)
  1. FENTANYL [Suspect]
     Indication: BACK PAIN
     Dosage: 20 UG/HR, Q 3 DAYS
     Route: 062
     Dates: start: 201304

REACTIONS (2)
  - Application site erythema [Recovered/Resolved]
  - Product quality issue [Recovered/Resolved]
